FAERS Safety Report 24360988 (Version 6)
Quarter: 2024Q4

REPORT INFORMATION
  Report Type: Spontaneous
  Country: US (occurrence: US)
  Receive Date: 20240925
  Receipt Date: 20241112
  Transmission Date: 20250114
  Serious: No
  Sender: BRISTOL-MYERS SQUIBB COMPANY
  Company Number: US-BRISTOL-MYERS SQUIBB COMPANY-2024-151178

PATIENT
  Age: 81 Year
  Sex: Male

DRUGS (2)
  1. REVLIMID [Suspect]
     Active Substance: LENALIDOMIDE
     Indication: Plasma cell myeloma
     Dosage: FREQUENCY:21 DAYS/ 21 DAYS ON 7 DAYS
     Route: 048
  2. REVLIMID [Suspect]
     Active Substance: LENALIDOMIDE
     Route: 048

REACTIONS (13)
  - Product dose omission issue [Unknown]
  - Oedema peripheral [Unknown]
  - Fall [Unknown]
  - Inappropriate schedule of product administration [Unknown]
  - Peripheral swelling [Unknown]
  - Oral pain [Unknown]
  - Memory impairment [Unknown]
  - Hyponatraemia [Unknown]
  - Anal incontinence [Unknown]
  - Electrolyte imbalance [Unknown]
  - Diarrhoea [Unknown]
  - Dyspnoea [Unknown]
  - Dizziness [Unknown]

NARRATIVE: CASE EVENT DATE: 20241101
